FAERS Safety Report 6516879-3 (Version None)
Quarter: 2009Q4

REPORT INFORMATION
  Report Type: 
  Country: None (occurrence: None)
  Receive Date: 20091223
  Receipt Date: 20091216
  Transmission Date: 20100525
  Serious: Yes (Other)
  Sender: FDA-Public Use
  Company Number: US-GILEAD-2009-0026068

PATIENT
  Age: 42 Year
  Sex: Male
  Weight: 64.468 kg

DRUGS (4)
  1. TRUVADA [Suspect]
     Indication: HIV INFECTION
     Route: 048
     Dates: start: 20091021
  2. REYATAZ [Suspect]
     Indication: HIV INFECTION
     Route: 048
     Dates: start: 20091021
  3. NORVIR [Concomitant]
     Indication: HIV INFECTION
     Route: 048
  4. BACTRIM DS [Concomitant]
     Dates: start: 20090812

REACTIONS (1)
  - NEUTROPENIA [None]
